FAERS Safety Report 8828237 (Version 3)
Quarter: 2012Q4

REPORT INFORMATION
  Report Type: 
  Country: JP (occurrence: JP)
  Receive Date: 20121008
  Receipt Date: 20121123
  Transmission Date: 20130627
  Serious: Yes (Other)
  Sender: FDA-Public Use
  Company Number: PHHY2012JP087012

PATIENT
  Age: 75 Year
  Sex: Male

DRUGS (2)
  1. ZOLEDRONIC ACID [Suspect]
     Indication: METASTASES TO BONE
     Dosage: 4 mg per administration
     Route: 041
     Dates: start: 200806, end: 200911
  2. ZOLEDRONIC ACID [Suspect]
     Dosage: 4 mg per administration
     Route: 041
     Dates: end: 201109

REACTIONS (5)
  - Osteonecrosis of jaw [Recovering/Resolving]
  - Osteomyelitis [Recovering/Resolving]
  - Periodontitis [Unknown]
  - Rhinorrhoea [Unknown]
  - Pain [Unknown]
